FAERS Safety Report 18750315 (Version 1)
Quarter: 2021Q1

REPORT INFORMATION
  Report Type: Spontaneous
  Country: US (occurrence: US)
  Receive Date: 20210118
  Receipt Date: 20210118
  Transmission Date: 20210419
  Serious: No
  Sender: FDA-Public Use
  Company Number: US-ABBVIE-21K-163-3733183-00

PATIENT
  Sex: Male

DRUGS (2)
  1. XYOSTED [Concomitant]
     Active Substance: TESTOSTERONE ENANTHATE
     Indication: PRIMARY HYPOGONADISM
  2. TESTOSTERONE. [Suspect]
     Active Substance: TESTOSTERONE
     Indication: PRIMARY HYPOGONADISM
     Route: 061

REACTIONS (1)
  - Accidental exposure to product [Unknown]
